FAERS Safety Report 6406707-9 (Version None)
Quarter: 2009Q4

REPORT INFORMATION
  Report Type: 
  Country: None (occurrence: None)
  Receive Date: 20091020
  Receipt Date: 20091012
  Transmission Date: 20100525
  Serious: Yes (Other)
  Sender: FDA-Public Use
  Company Number: TR-ELI_LILLY_AND_COMPANY-TR200910002363

PATIENT

DRUGS (4)
  1. HUMULIN R [Suspect]
     Dosage: 8 U, MORNING
     Route: 058
     Dates: start: 20090717, end: 20090917
  2. HUMULIN R [Suspect]
     Dosage: 8 U, NOON
     Route: 058
     Dates: start: 20090717, end: 20090917
  3. HUMULIN R [Suspect]
     Dosage: 8 U, EVENING
     Route: 058
     Dates: start: 20090717, end: 20090917
  4. PAROL [Concomitant]
     Dosage: 500 MG, UNKNOWN
     Route: 065
     Dates: start: 20090101, end: 20090917

REACTIONS (2)
  - DRUG EXPOSURE DURING PREGNANCY [None]
  - JAUNDICE [None]
